FAERS Safety Report 16334985 (Version 1)
Quarter: 2019Q2

REPORT INFORMATION
  Report Type: Report from Study
  Country: CA (occurrence: US)
  Receive Date: 20190520
  Receipt Date: 20190520
  Transmission Date: 20190711
  Serious: Yes (Other)
  Sender: FDA-Public Use
  Company Number: CA-BEH-2019102298

PATIENT
  Age: 26 Year
  Sex: Female

DRUGS (1)
  1. HAEMATE P [Suspect]
     Active Substance: ANTIHEMOPHILIC FACTOR HUMAN
     Indication: VON WILLEBRAND^S DISEASE
     Dosage: UNK
     Route: 065
     Dates: end: 2018

REACTIONS (2)
  - Von Willebrand^s factor antibody positive [Unknown]
  - Haemorrhage [Recovered/Resolved]
